FAERS Safety Report 8401692-2 (Version None)
Quarter: 2012Q2

REPORT INFORMATION
  Report Type: 
  Country: None (occurrence: None)
  Receive Date: 20120601
  Receipt Date: 20120529
  Transmission Date: 20120825
  Serious: No
  Sender: FDA-Public Use
  Company Number: US-PFIZER INC-2012129029

PATIENT
  Sex: Female
  Weight: 61.224 kg

DRUGS (4)
  1. IBUPROFEN (ADVIL) [Suspect]
     Indication: PAIN
     Dosage: 400 MG, DAILY
     Dates: start: 20120501
  2. OXYCONTIN [Suspect]
     Indication: PAIN
     Dosage: UNK, DAILY
  3. TIMOLOL [Concomitant]
     Indication: MACULAR DEGENERATION
     Dosage: 1 GTT, 1X/DAY
  4. IBUPROFEN (ADVIL) [Suspect]
     Dosage: 600 MG, DAILY
     Dates: start: 20120501

REACTIONS (3)
  - CONSTIPATION [None]
  - DRUG INEFFECTIVE [None]
  - INCORRECT DOSE ADMINISTERED [None]
